FAERS Safety Report 10084182 (Version 2)
Quarter: 2014Q2

REPORT INFORMATION
  Report Type: Report from Study
  Country: US (occurrence: US)
  Receive Date: 20140417
  Receipt Date: 20140417
  Transmission Date: 20141212
  Serious: Yes (Death, Hospitalization, Other)
  Sender: FDA-Public Use
  Company Number: US-TAKEDA-TPA2013A06004

PATIENT
  Age: 79 Year
  Sex: Male
  Weight: 113.8 kg

DRUGS (119)
  1. POTASSIUM CHLORIDE [Concomitant]
     Dosage: 60 MEQ, ONCE
     Route: 048
     Dates: start: 20130516, end: 20130516
  2. NITROGLYCERIN [Concomitant]
     Indication: CARDIAC DISORDER
     Dosage: 0.4 MG, PRN
     Route: 060
     Dates: start: 1999
  3. NITROGLYCERIN [Concomitant]
     Dosage: 2 %, ONCE
     Route: 061
     Dates: start: 20130618, end: 20130618
  4. ZOLPIDEM [Concomitant]
     Indication: INSOMNIA
     Dosage: 5 MG, PRN
     Route: 048
     Dates: start: 2011, end: 20130520
  5. ZOLPIDEM [Concomitant]
     Indication: CARDIAC FAILURE CONGESTIVE
     Dosage: 10 MG, PRN
     Route: 048
     Dates: start: 20130521
  6. ZOLPIDEM [Concomitant]
     Dosage: 5 MG, PRN
     Route: 048
     Dates: start: 20130607, end: 20130607
  7. CITALOPRAM [Concomitant]
     Indication: DEPRESSION
     Dosage: 40 MG, QD
     Route: 048
     Dates: start: 201203
  8. PANTOPRAZOLE [Concomitant]
     Indication: GASTROOESOPHAGEAL REFLUX DISEASE
     Dosage: 40 MG, QD
     Route: 048
     Dates: start: 2009
  9. SENNOSIDES [Concomitant]
     Indication: CONSTIPATION
     Dosage: 8.6 MG, BID
     Route: 048
     Dates: start: 2008
  10. CARBIDOPA [Concomitant]
     Indication: PARKINSON^S DISEASE
     Dosage: 50 MG, QID
     Route: 048
     Dates: start: 20120905
  11. LEVODOPA [Concomitant]
     Indication: PARKINSON^S DISEASE
     Dosage: 200 MG, QID
     Route: 048
     Dates: start: 20120905
  12. ISOSORBIDE MONONITRATE SR [Concomitant]
     Indication: CARDIAC DISORDER
     Dosage: 60 MG, QD
     Route: 048
     Dates: start: 20120918, end: 20130520
  13. ISOSORBIDE MONONITRATE SR [Concomitant]
     Indication: RENAL FAILURE ACUTE
     Dosage: 60 MG QD
     Route: 048
     Dates: start: 20130521, end: 20130528
  14. ISOSORBIDE MONONITRATE SR [Concomitant]
     Dosage: 60 MG, QD
     Route: 048
     Dates: start: 20130518, end: 20130520
  15. PROSCAR [Concomitant]
     Indication: BENIGN PROSTATIC HYPERPLASIA
     Dosage: 5 MG, QD
     Route: 048
     Dates: start: 20121112
  16. METOLAZONE [Concomitant]
     Indication: CARDIAC FAILURE CONGESTIVE
     Dosage: 5 MG, PRN
     Route: 048
     Dates: start: 20130114
  17. METOLAZONE [Concomitant]
     Dosage: 2.5 MG, BID
     Route: 048
     Dates: start: 20130525, end: 20130528
  18. ASPIRIN [Concomitant]
     Indication: CARDIOVASCULAR EVENT PROPHYLAXIS
     Dosage: 81 MG, QD
     Route: 048
     Dates: start: 20130515, end: 20130520
  19. ASPIRIN [Concomitant]
     Indication: CARDIAC FAILURE CONGESTIVE
     Dosage: 81 MG, QD
     Route: 048
     Dates: start: 20130530, end: 20130610
  20. ASPIRIN [Concomitant]
     Indication: RENAL FAILURE ACUTE
     Dosage: 81 MG QD
     Route: 048
     Dates: start: 20130521, end: 20130528
  21. ASPIRIN [Concomitant]
     Indication: ACUTE MYOCARDIAL INFARCTION
     Dosage: 325 MG, ONCE
     Route: 048
     Dates: start: 20130618, end: 20130618
  22. HYDRALAZINE [Concomitant]
     Indication: CARDIAC FAILURE CONGESTIVE
     Dosage: 10 MG, QID
     Route: 048
     Dates: start: 20130518, end: 20130520
  23. HYDRALAZINE [Concomitant]
     Indication: CARDIAC FAILURE CONGESTIVE
     Dosage: 25 MG,Q8 HRS
     Route: 048
     Dates: start: 20130530, end: 20130610
  24. IPTRATROPRIUM ALBUTEROL [Concomitant]
     Indication: CHRONIC OBSTRUCTIVE PULMONARY DISEASE
     Dosage: 0.5/3 MG, Q2HR PRN
     Route: 050
     Dates: start: 20130521, end: 20130528
  25. ESCITALOPRAM [Concomitant]
     Indication: DEPRESSION
     Dosage: 10 MG, QHS
     Route: 048
     Dates: start: 20130515, end: 20130519
  26. SODIUM POLYSTYRENE [Concomitant]
     Indication: HYPERKALAEMIA
     Dosage: 15 G, ONCE
     Route: 048
     Dates: start: 20130521, end: 20130521
  27. BISACODYL [Concomitant]
     Indication: CONSTIPATION
     Dosage: 10 MG, QD, PRN
     Route: 054
     Dates: start: 20130521, end: 20130528
  28. SIMVASTATIN [Concomitant]
     Indication: BLOOD CHOLESTEROL INCREASED
     Dosage: 20 MG, QD
     Route: 048
     Dates: start: 20130521, end: 20130522
  29. SIMVASTATIN [Concomitant]
     Indication: HYPERLIPIDAEMIA
     Dosage: 20 MG, QD
     Route: 048
     Dates: start: 20130515, end: 20130519
  30. SODIUM CHLORIDE 0.9 % [Concomitant]
     Indication: RENAL FAILURE ACUTE
     Dosage: 2 CC, ONCE
     Route: 042
     Dates: start: 20130518, end: 20130518
  31. SODIUM CHLORIDE 0.9 % [Concomitant]
     Dosage: 1000 ML, ONCE
     Route: 042
     Dates: start: 20130515, end: 20130515
  32. ACETAMINOPHEN [Concomitant]
     Indication: CARDIAC FAILURE CONGESTIVE
     Dosage: 650 MG, ONCE
     Route: 048
     Dates: start: 20130619, end: 20130619
  33. ACETAMINOPHEN [Concomitant]
     Indication: RENAL FAILURE ACUTE
     Dosage: 650 MG, PRN
     Route: 048
     Dates: start: 20130606, end: 20130606
  34. ACETAMINOPHEN [Concomitant]
     Indication: ACUTE MYOCARDIAL INFARCTION
     Dosage: 650 MG, PRN
     Route: 048
     Dates: start: 20130516, end: 20130517
  35. ACETAMINOPHEN [Concomitant]
     Dosage: 650 MG, PRN
     Route: 048
     Dates: start: 20130608, end: 20130608
  36. ACETAMINOPHEN [Concomitant]
     Dosage: 650 MG, PRN
     Route: 048
     Dates: start: 20130519, end: 20130519
  37. ACETAMINOPHEN [Concomitant]
     Dosage: 650 UNK, ONCE
     Route: 048
     Dates: start: 20130526, end: 20130526
  38. BUSPIRONE [Concomitant]
     Indication: DEPRESSION
     Dosage: 10 MG, PRN
     Route: 048
     Dates: start: 20130516, end: 20130519
  39. CETIRIZINE [Concomitant]
     Indication: RENAL FAILURE ACUTE
     Dosage: 10 MG, QD
     Route: 048
     Dates: start: 20130516, end: 20130520
  40. DOBUTAMINE [Concomitant]
     Indication: CARDIAC FAILURE CONGESTIVE
     Dosage: 2.5 MCG/KG/MIN, CONTINUOUS
     Route: 042
     Dates: start: 20130521, end: 20130525
  41. DOBUTAMINE [Concomitant]
     Indication: RENAL FAILURE ACUTE
     Dosage: 2.5 ML/HR, CONTINUOUS
     Route: 042
     Dates: start: 20130619, end: 20130619
  42. DOBUTAMINE [Concomitant]
     Dosage: 2.5 MG, CONTINOUS
     Route: 042
     Dates: start: 20130517, end: 20130519
  43. DOBUTAMINE [Concomitant]
     Dosage: 5 ML, CONTINOUS
     Route: 042
     Dates: start: 20130531, end: 20130609
  44. DOCUSATE SODIUM [Concomitant]
     Indication: RENAL FAILURE ACUTE
     Dosage: 100 MG, BID
     Route: 048
     Dates: start: 20130515, end: 20130520
  45. OMEPRAZOLE [Concomitant]
     Indication: GASTROOESOPHAGEAL REFLUX DISEASE
     Dosage: 20 MG, QD
     Route: 048
     Dates: start: 20130515, end: 20130520
  46. OMEPRAZOLE [Concomitant]
     Indication: RENAL FAILURE ACUTE
     Dosage: 20 MG QD
     Route: 048
     Dates: start: 20130521, end: 20130528
  47. LACTULOSE [Concomitant]
     Indication: CARDIAC FAILURE CONGESTIVE
     Dosage: 30 ML, QD
     Route: 048
     Dates: start: 20130531, end: 20130531
  48. ROBITUSSIN [Concomitant]
     Indication: CARDIAC FAILURE CONGESTIVE
     Dosage: 10 ML, PRN
     Route: 048
     Dates: start: 20130530, end: 20130601
  49. ESOMEPRAZOLE [Concomitant]
     Indication: CARDIAC FAILURE CONGESTIVE
     Dosage: 40 MG, QD
     Route: 048
     Dates: start: 20130530, end: 20130610
  50. PHENTOLAMINE [Concomitant]
     Indication: CARDIAC FAILURE CONGESTIVE
     Dosage: 5 MG, ONCE
     Route: 058
     Dates: start: 20130531, end: 20130531
  51. FUROSEMIDE INFUSION [Concomitant]
     Indication: CARDIAC FAILURE CONGESTIVE
     Dosage: 10 MG/HR, CONTINUOUS
     Route: 042
     Dates: start: 20130529, end: 20130530
  52. FUROSEMIDE INFUSION [Concomitant]
     Dosage: 7.5 MG/HR, CONTINUOUS
     Route: 042
     Dates: start: 20130531, end: 20130606
  53. ISOSROBIDE MONONITRATE [Concomitant]
     Indication: CARDIAC DISORDER
     Dosage: 30 MG, QD
     Route: 048
     Dates: start: 20120918, end: 20130520
  54. ISOSROBIDE MONONITRATE [Concomitant]
     Indication: CARDIAC FAILURE CONGESTIVE
     Dosage: 30 MG, QD
     Route: 048
     Dates: start: 20130530, end: 20130610
  55. POTASSIUM CHLORIDE SR [Concomitant]
     Indication: RENAL FAILURE ACUTE
     Dosage: 20 MEQ, BID
     Route: 048
     Dates: start: 20130517, end: 20130518
  56. POTASSIUM CHLORIDE SR [Concomitant]
     Indication: HYPOKALAEMIA
     Dosage: 40 MEQ, TID
     Route: 048
     Dates: start: 20130519, end: 20130520
  57. FUROSEMIDE [Concomitant]
     Indication: RENAL FAILURE ACUTE
     Dosage: 40 MG, QD
     Route: 042
     Dates: start: 20130518, end: 20130519
  58. FUROSEMIDE [Concomitant]
     Indication: CARDIAC FAILURE CONGESTIVE
     Dosage: 80 MG, QD
     Route: 042
     Dates: start: 20130529, end: 20130529
  59. TRAZODONE [Concomitant]
     Indication: CARDIAC FAILURE CONGESTIVE
     Dosage: 25 MG, PRN
     Route: 048
     Dates: start: 20130607, end: 20130607
  60. SODIUM POLYSTYRENE SULFONATE [Concomitant]
     Indication: CARDIAC FAILURE CONGESTIVE
     Dosage: 30 G, BID
     Route: 048
     Dates: start: 20130608, end: 20130608
  61. CALCIUM GLUCONATE [Concomitant]
     Indication: CARDIAC FAILURE CONGESTIVE
     Dosage: 1000 MG, QD
     Route: 042
     Dates: start: 20130608, end: 20130608
  62. BACTRACIN TOPICAL OINTMENT [Concomitant]
     Indication: CARDIAC FAILURE CONGESTIVE
     Dosage: 1 APPLICATION , BID
     Route: 061
     Dates: start: 20130531, end: 20130607
  63. HEPARIN SODIUM [Concomitant]
     Indication: CARDIAC FAILURE CONGESTIVE
     Dosage: 5000 IU, TID
     Route: 058
     Dates: start: 20130529, end: 20130605
  64. HEPARIN SODIUM [Concomitant]
     Dosage: 100 ML, CONTINUOUS
     Route: 042
     Dates: start: 20130605, end: 20130609
  65. CAPTOPRIL [Concomitant]
     Indication: CARDIAC FAILURE CONGESTIVE
     Dosage: 6.25 MG, Q6HRS
     Route: 048
     Dates: start: 20130604, end: 20130607
  66. CLINDAMYCIN [Concomitant]
     Indication: CARDIAC FAILURE CONGESTIVE
     Dosage: 300 MG, Q 8 HRS
     Route: 048
     Dates: start: 20130603, end: 20130610
  67. ERGOCALCIFEROL [Concomitant]
     Indication: CARDIAC FAILURE CONGESTIVE
     Dosage: 50000 IU, QD
     Route: 048
     Dates: start: 20130601, end: 20130601
  68. ERGOCALCIFEROL [Concomitant]
     Dosage: 50000 IU, QD
     Route: 048
     Dates: start: 20130608, end: 20130608
  69. GUAIFENESIN [Concomitant]
     Indication: RENAL FAILURE ACUTE
     Dosage: 100 MG, PRN
     Route: 048
     Dates: start: 20130516, end: 20130520
  70. SPIRONOLACTONE [Concomitant]
     Indication: CARDIAC FAILURE CONGESTIVE
     Dosage: 25 MG, BID
     Route: 048
     Dates: start: 20130524, end: 20130528
  71. BENZONATATE [Concomitant]
     Indication: CARDIAC FAILURE ACUTE
     Dosage: 200 MG, TID PRN
     Route: 048
     Dates: start: 20130521, end: 20130528
  72. BENZONATATE [Concomitant]
     Indication: RENAL FAILURE ACUTE
     Dosage: 100 MG, TID
     Route: 048
     Dates: start: 20130516, end: 20130520
  73. ZOSYN [Concomitant]
     Indication: CARDIAC FAILURE CONGESTIVE
     Dosage: 3.375 G, QID
     Route: 042
     Dates: start: 20130521, end: 20130523
  74. DEXTROMETHORPHAN GUIAFENESIN [Concomitant]
     Indication: CARDIAC FAILURE CONGESTIVE
     Dosage: 10-100 MG/ML, Q4HR,PRN
     Route: 048
     Dates: start: 20130525, end: 20130528
  75. INSULIN NOVOLOG [Concomitant]
     Indication: CARDIAC FAILURE CONGESTIVE
     Dosage: 100 UNITS/ML, TID, PRN
     Route: 058
     Dates: start: 20130522, end: 20130528
  76. SODIUM CHLORIDE [Concomitant]
     Indication: CARDIAC FAILURE CONGESTIVE
     Dosage: 0.9 %, CONTINOUS
     Route: 042
     Dates: start: 20130521, end: 20130528
  77. SODIUM CHLORIDE [Concomitant]
     Indication: ACUTE MYOCARDIAL INFARCTION
     Dosage: 0.9 %, CONTINUOUS
     Route: 042
     Dates: start: 20130529, end: 20130610
  78. SODIUM CHLORIDE [Concomitant]
     Indication: RENAL FAILURE ACUTE
     Dosage: 20 ML, QID, FLUSH
     Route: 042
     Dates: start: 20130529, end: 20130610
  79. SODIUM CHLORIDE [Concomitant]
     Indication: PROPHYLAXIS
     Dosage: 5 ML, BID, FLUSH
     Route: 042
     Dates: start: 20130619, end: 20130620
  80. SODIUM CHLORIDE [Concomitant]
     Dosage: 0.9 %, ONCE
     Route: 042
     Dates: start: 20130618, end: 20130618
  81. WARFARIN [Concomitant]
     Indication: ISCHAEMIC CARDIOMYOPATHY
     Dosage: 5 MG, QD
     Route: 048
     Dates: start: 2011, end: 20130520
  82. WARFARIN [Concomitant]
     Indication: RENAL FAILURE ACUTE
     Dosage: 4 MG, QD
     Route: 048
     Dates: start: 20130520, end: 20130520
  83. WARFARIN [Concomitant]
     Indication: CARDIAC FAILURE CONGESTIVE
     Dosage: 2 MG, QD
     Route: 048
     Dates: start: 20130518, end: 20130519
  84. WARFARIN [Concomitant]
     Indication: MYOCARDIAL INFARCTION
     Dosage: 4 MG, QD
     Route: 048
     Dates: start: 20130605, end: 20130609
  85. WARFARIN [Concomitant]
     Dosage: 3 MG, ONCE
     Route: 048
     Dates: start: 20130619, end: 20130619
  86. BUMETANIDE [Concomitant]
     Indication: CARDIAC FAILURE ACUTE
     Dosage: 2 MG, QD
     Route: 048
     Dates: start: 20130520, end: 20130520
  87. BUMETANIDE [Concomitant]
     Dosage: 2 MG, BID
     Route: 042
     Dates: start: 20130522, end: 20130528
  88. BUMETANIDE [Concomitant]
     Dosage: 2 MG, BID
     Route: 048
     Dates: start: 20130608, end: 20130610
  89. BARIUM SULFATE [Concomitant]
     Indication: RENAL FAILURE ACUTE
     Dosage: 900 ML, ONCE
     Route: 048
     Dates: start: 20130515, end: 20130515
  90. LORAZEPAM [Concomitant]
     Indication: DEPRESSION
     Dosage: 1 MG, ONCE
     Route: 042
     Dates: start: 20130515, end: 20130515
  91. PERFLUTREN LIPID MICROSPHERE [Concomitant]
     Indication: RENAL FAILURE ACUTE
     Dosage: 2 ML, ONCE
     Route: 042
     Dates: start: 20130516, end: 20130516
  92. PERFLUTREN LIPID MICROSPHERE [Concomitant]
     Indication: ACUTE MYOCARDIAL INFARCTION
     Dosage: 2.2 MG, ONCE
     Route: 042
     Dates: start: 20130619, end: 20130619
  93. PIPERACILLIN TAZOBACTAM [Concomitant]
     Indication: RENAL FAILURE ACUTE
     Dosage: 3.375 G, ONCE
     Route: 042
     Dates: start: 20130516, end: 20130516
  94. HYDROMORPHONE [Concomitant]
     Indication: ACUTE MYOCARDIAL INFARCTION
     Dosage: 1 MG, ONCE
     Route: 042
     Dates: start: 20130618, end: 20130618
  95. ONDANSETRON [Concomitant]
     Indication: ACUTE MYOCARDIAL INFARCTION
     Dosage: 4 MG, ONCE
     Route: 042
     Dates: start: 20130618, end: 20130618
  96. AMIODARONE [Concomitant]
     Indication: ACUTE MYOCARDIAL INFARCTION
     Dosage: 400 MG, ONCE
     Route: 048
     Dates: start: 20130620, end: 20130620
  97. KETOROLAC [Concomitant]
     Indication: RENAL FAILURE ACUTE
     Dosage: 15 MG, PRN
     Route: 042
     Dates: start: 20130516, end: 20130516
  98. ENOXAPARIN [Concomitant]
     Indication: ACUTE MYOCARDIAL INFARCTION
     Dosage: 100 MG, BID
     Route: 058
     Dates: start: 20130619, end: 20130619
  99. FAMOTIDINE [Concomitant]
     Indication: ACUTE MYOCARDIAL INFARCTION
     Dosage: 20 MG, BID
     Route: 042
     Dates: start: 20130619, end: 20130620
  100. BLINDED ALLOPURINOL [Suspect]
     Indication: HYPERURICAEMIA
     Dosage: UNK, QD
     Route: 048
     Dates: start: 20120905, end: 20130514
  101. BLINDED FEBUXOSTAT [Suspect]
     Indication: HYPERURICAEMIA
     Dosage: UNK, QD
     Route: 048
     Dates: start: 20120905, end: 20130514
  102. DOCUSATE [Concomitant]
     Indication: CONSTIPATION
     Dosage: 100 MG, BID
     Route: 048
     Dates: start: 2008
  103. LORATADINE [Concomitant]
     Indication: RHINITIS ALLERGIC
     Dosage: 10 MG, QD
     Route: 048
     Dates: start: 2011
  104. MULTI-VITAMIN [Concomitant]
     Indication: VITAMIN SUPPLEMENTATION
     Dosage: 1 DF, QD
     Route: 048
     Dates: start: 1992
  105. MULTI-VITAMIN [Concomitant]
     Indication: ACUTE MYOCARDIAL INFARCTION
     Dosage: 1 DF, ONCE
     Route: 048
     Dates: start: 20130619, end: 20130619
  106. MECLIZINE [Concomitant]
     Indication: VERTIGO
     Dosage: 25 MG, PRN
     Route: 048
     Dates: start: 201101
  107. ALBUTEROL [Concomitant]
     Indication: CHRONIC OBSTRUCTIVE PULMONARY DISEASE
     Dosage: 2.5 MG, PRN
     Route: 050
     Dates: start: 2010
  108. SYMBICORT [Concomitant]
     Indication: CHRONIC OBSTRUCTIVE PULMONARY DISEASE
     Dosage: 160/4.5 MCG, BID
     Route: 050
     Dates: start: 2007
  109. COMBIVENT [Concomitant]
     Indication: CHRONIC OBSTRUCTIVE PULMONARY DISEASE
     Dosage: 2 PUFFS, PM
     Route: 050
     Dates: start: 2007
  110. VICODIN [Concomitant]
     Indication: ARTHRITIS
     Dosage: 5/500 MG, PRN
     Route: 048
     Dates: start: 2010
  111. VICODIN [Concomitant]
     Indication: GOUT
  112. PRAVASTATION [Concomitant]
     Indication: BLOOD CHOLESTEROL INCREASED
     Dosage: 40 MG, QD
     Route: 048
     Dates: start: 2011, end: 20130622
  113. SIMETHICONE [Concomitant]
     Indication: CONSTIPATION
     Dosage: 80 MG, PRN
     Route: 048
     Dates: start: 2011
  114. CARVEDILOL [Concomitant]
     Indication: HYPERTENSION
     Dosage: 6.25 MG, BID
     Route: 048
     Dates: start: 2011
  115. CARVEDILOL [Concomitant]
     Indication: ACUTE MYOCARDIAL INFARCTION
     Dosage: 3.125 MG, BID
     Route: 048
     Dates: start: 20130619, end: 20130620
  116. POTASSIUM CHLORIDE [Concomitant]
     Indication: HYPOKALAEMIA
     Dosage: 20 MEQ, TID
     Route: 048
     Dates: start: 201208, end: 20130623
  117. POTASSIUM CHLORIDE [Concomitant]
     Indication: CARDIAC FAILURE CONGESTIVE
     Dosage: 40 MEQ, ONCE
     Route: 042
     Dates: start: 20130524, end: 20130524
  118. POTASSIUM CHLORIDE [Concomitant]
     Indication: RENAL FAILURE ACUTE
     Dosage: 40 MG, ONCE
     Route: 048
     Dates: start: 20130523, end: 20130523
  119. POTASSIUM CHLORIDE [Concomitant]
     Indication: CARDIAC FAILURE CONGESTIVE
     Dosage: 40 MEQ, BID
     Route: 048
     Dates: start: 20130530, end: 20130610

REACTIONS (3)
  - Sepsis [Recovered/Resolved]
  - Cardiac failure congestive [Fatal]
  - Acute myocardial infarction [Recovered/Resolved]
